FAERS Safety Report 20015613 (Version 1)
Quarter: 2021Q4

REPORT INFORMATION
  Report Type: Spontaneous
  Country: US (occurrence: None)
  Receive Date: 20211101
  Receipt Date: 20211101
  Transmission Date: 20220303
  Serious: Yes (Life-Threatening)
  Sender: FDA-Public Use
  Company Number: None

PATIENT
  Age: 11 Year
  Sex: Male
  Weight: 29.25 kg

DRUGS (4)
  1. MONTELUKAST [Suspect]
     Active Substance: MONTELUKAST SODIUM
     Indication: Asthma
     Dosage: OTHER QUANTITY : 1 TABLET(S);?FREQUENCY : AT BEDTIME;?
     Route: 048
  2. ALVESCO [Concomitant]
     Active Substance: CICLESONIDE
  3. ALBUTEROL [Concomitant]
     Active Substance: ALBUTEROL
  4. MAMA BEAR ORGANIC KIDS VITAMIN D3 [Concomitant]

REACTIONS (9)
  - Crying [None]
  - Emotional disorder [None]
  - Sleep disorder [None]
  - Suicidal ideation [None]
  - Tooth discolouration [None]
  - Abdominal pain upper [None]
  - Feeling jittery [None]
  - Agitation [None]
  - Depression [None]

NARRATIVE: CASE EVENT DATE: 20211007
